FAERS Safety Report 5180056-1 (Version None)
Quarter: 2006Q4

REPORT INFORMATION
  Report Type: 
  Country: None (occurrence: None)
  Receive Date: 20061211
  Receipt Date: 20061108
  Transmission Date: 20070319
  Serious: Yes (Other)
  Sender: FDA-Public Use
  Company Number: 2006SP000399

PATIENT
  Sex: Female

DRUGS (5)
  1. PEGETRON (PEGINTERFERON ALFA-2B W/RIBAVIRIN) (PEGYLATED INTERFERON ALF [Suspect]
     Indication: HEPATITIS C
     Dosage: 40 MCG, QW; SC
     Route: 058
     Dates: start: 20060213, end: 20060830
  2. PEGETRON (PEGINTERFERON ALFA-2B W/RIBAVIRIN) (PEGYLATED INTERFERON ALF [Suspect]
     Dosage: 800 MG, QD, PO
     Route: 048
     Dates: start: 20060213, end: 20060830
  3. REMERON [Concomitant]
  4. ZOPICLONE [Concomitant]
  5. PARIET [Concomitant]

REACTIONS (3)
  - APHASIA [None]
  - DYSPHONIA [None]
  - DYSPNOEA [None]
